FAERS Safety Report 14837058 (Version 1)
Quarter: 2018Q2

REPORT INFORMATION
  Report Type: Other
  Country: FR (occurrence: FR)
  Receive Date: 20180502
  Receipt Date: 20180502
  Transmission Date: 20180711
  Serious: Yes (Other)
  Sender: FDA-Public Use
  Company Number: FR-MERCK KGAA-2046994

PATIENT
  Age: 61 Year
  Sex: Female
  Weight: 56 kg

DRUGS (1)
  1. NOVOTHYROX [Suspect]
     Active Substance: LEVOTHYROXINE SODIUM
     Indication: HYPOTHYROIDISM

REACTIONS (20)
  - Emotional disorder [None]
  - Memory impairment [None]
  - Dementia Alzheimer^s type [None]
  - Dyspnoea [None]
  - Impatience [None]
  - Hyperthyroidism [None]
  - Gait disturbance [None]
  - Mental fatigue [None]
  - Depressed mood [None]
  - Dizziness [None]
  - Asthenia [None]
  - Family stress [None]
  - Fatigue [None]
  - Feeling abnormal [None]
  - Loss of personal independence in daily activities [None]
  - Blood thyroid stimulating hormone increased [None]
  - Diarrhoea [None]
  - Stress [None]
  - Muscular weakness [None]
  - Insomnia [None]

NARRATIVE: CASE EVENT DATE: 201704
